FAERS Safety Report 11745765 (Version 1)
Quarter: 2015Q4

REPORT INFORMATION
  Report Type: Spontaneous
  Country: None (occurrence: None)
  Receive Date: 20151116
  Receipt Date: 20151116
  Transmission Date: 20160304
  Serious: No
  Sender: FDA-Public Use
  Company Number: None

PATIENT
  Age: 26 Year
  Sex: Male
  Weight: 70.76 kg

DRUGS (3)
  1. PREDNISONE 20 MG [Suspect]
     Active Substance: PREDNISONE
     Indication: INTERVERTEBRAL DISC PROTRUSION
     Dosage: 20 MG TABLET
     Route: 048
  2. CYCLOBENZAPRINE [Concomitant]
     Active Substance: CYCLOBENZAPRINE
  3. IBUPROFEN. [Concomitant]
     Active Substance: IBUPROFEN

REACTIONS (16)
  - Dyspnoea [None]
  - Chest discomfort [None]
  - Rash [None]
  - Panic reaction [None]
  - Asthenia [None]
  - Insomnia [None]
  - Dizziness [None]
  - Heart rate irregular [None]
  - Vision blurred [None]
  - Hypertension [None]
  - Tremor [None]
  - Erythema [None]
  - Eye irritation [None]
  - Nerve compression [None]
  - Anxiety [None]
  - Depression [None]

NARRATIVE: CASE EVENT DATE: 20151015
